FAERS Safety Report 9110460 (Version 1)
Quarter: 2013Q1

REPORT INFORMATION
  Report Type: Spontaneous
  Country: US (occurrence: US)
  Receive Date: 20130219
  Receipt Date: 20130219
  Transmission Date: 20140127
  Serious: Yes (Other)
  Sender: FDA-Public Use
  Company Number: US-BRACCO-008646

PATIENT
  Age: 56 Year
  Sex: Female

DRUGS (2)
  1. ISOVUE [Suspect]
     Indication: FISTULOGRAM
     Route: 042
     Dates: start: 20120926, end: 20120926
  2. ISOVUE [Suspect]
     Indication: ARTERIOVENOUS FISTULA OCCLUSION
     Route: 042
     Dates: start: 20120926, end: 20120926

REACTIONS (1)
  - Hypersensitivity [Recovering/Resolving]
